FAERS Safety Report 21628855 (Version 1)
Quarter: 2022Q4

REPORT INFORMATION
  Report Type: Spontaneous
  Country: US (occurrence: None)
  Receive Date: 20221121
  Receipt Date: 20221121
  Transmission Date: 20230113
  Serious: No
  Sender: FDA-Public Use
  Company Number: None

PATIENT
  Age: 45 Year
  Sex: Female

DRUGS (1)
  1. STELARA [Suspect]
     Active Substance: USTEKINUMAB
     Indication: Crohn^s disease
     Dosage: OTHER FREQUENCY : Q 8WKS;?
     Route: 058
     Dates: start: 202012

REACTIONS (3)
  - Device defective [None]
  - Needle issue [None]
  - Product dose omission issue [None]

NARRATIVE: CASE EVENT DATE: 20221118
